FAERS Safety Report 7555623-8 (Version None)
Quarter: 2011Q2

REPORT INFORMATION
  Report Type: 
  Country: None (occurrence: None)
  Receive Date: 20110617
  Receipt Date: 20081111
  Transmission Date: 20111010
  Serious: Yes (Death, Hospitalization, Other)
  Sender: FDA-Public Use
  Company Number: PHHY2008CA05711

PATIENT
  Sex: Male

DRUGS (1)
  1. SANDOSTATIN LAR [Suspect]
     Indication: GASTROINTESTINAL ANGIODYSPLASIA
     Dosage: 20 MG, QMO
     Route: 030
     Dates: start: 20071112, end: 20080929

REACTIONS (9)
  - GENERAL PHYSICAL HEALTH DETERIORATION [None]
  - BLOOD PRESSURE DECREASED [None]
  - RENAL FAILURE [None]
  - PALLOR [None]
  - DEATH [None]
  - ASTHENIA [None]
  - DIABETES MELLITUS [None]
  - HEART RATE DECREASED [None]
  - FLUID RETENTION [None]
